FAERS Safety Report 14802848 (Version 2)
Quarter: 2018Q3

REPORT INFORMATION
  Report Type: Report from Study
  Country: US (occurrence: US)
  Receive Date: 20180424
  Receipt Date: 20180924
  Transmission Date: 20181010
  Serious: Yes (Other)
  Sender: FDA-Public Use
  Company Number: US-ALEXION PHARMACEUTICALS INC.-A201804715

PATIENT
  Sex: Female

DRUGS (1)
  1. SOLIRIS [Suspect]
     Active Substance: ECULIZUMAB
     Indication: PRODUCT USED FOR UNKNOWN INDICATION
     Dosage: UNK
     Route: 065

REACTIONS (10)
  - Memory impairment [Unknown]
  - Head injury [Unknown]
  - Concussion [Unknown]
  - Oral infection [Unknown]
  - Muscle spasms [Unknown]
  - Road traffic accident [Unknown]
  - Laceration [Unknown]
  - Anxiety [Unknown]
  - Rib fracture [Unknown]
  - Clavicle fracture [Unknown]
